FAERS Safety Report 16749772 (Version 1)
Quarter: 2019Q4

REPORT INFORMATION
  Report Type: Spontaneous
  Country: US (occurrence: US)
  Receive Date: 20190827
  Receipt Date: 20190827
  Transmission Date: 20200122
  Serious: Yes (Other)
  Sender: FDA-Public Use
  Company Number: None

PATIENT
  Age: 33 Year
  Sex: Female
  Weight: 74.25 kg

DRUGS (1)
  1. NEOMYCIN AND POLYMYXIN B SULFATES AND DEXAMETHASONE OPTHALMIC OINTMENT [Suspect]
     Active Substance: DEXAMETHASONE SODIUM PHOSPHATE\NEOMYCIN SULFATE\POLYMYXIN B SULFATE
     Indication: POSTOPERATIVE CARE
     Route: 047
     Dates: start: 20190624, end: 20190627

REACTIONS (9)
  - Recalled product administered [None]
  - Instillation site swelling [None]
  - Eye haemorrhage [None]
  - Product contamination [None]
  - Instillation site discharge [None]
  - Conjunctivitis viral [None]
  - Instillation site inflammation [None]
  - Instillation site erythema [None]
  - Impaired work ability [None]

NARRATIVE: CASE EVENT DATE: 20190706
